FAERS Safety Report 23977565 (Version 1)
Quarter: 2024Q2

REPORT INFORMATION
  Report Type: Spontaneous
  Country: GB (occurrence: GB)
  Receive Date: 20240614
  Receipt Date: 20240614
  Transmission Date: 20240715
  Serious: Yes (Death, Other)
  Sender: FDA-Public Use
  Company Number: None

PATIENT
  Age: 10 Year
  Sex: Female

DRUGS (8)
  1. ACETAMINOPHEN [Suspect]
     Active Substance: ACETAMINOPHEN
     Indication: Lower respiratory tract infection
     Dosage: REDUCED DOSE IN VIEW OF HER RENAL IMPAIRMENT
     Route: 065
  2. ACETAMINOPHEN [Suspect]
     Active Substance: ACETAMINOPHEN
     Indication: Viral infection
  3. CEFUROXIME [Suspect]
     Active Substance: CEFUROXIME
     Indication: Lower respiratory tract infection
     Route: 065
  4. CEFUROXIME [Suspect]
     Active Substance: CEFUROXIME
     Indication: Viral infection
  5. ALBUTEROL [Concomitant]
     Active Substance: ALBUTEROL
     Indication: Lower respiratory tract infection
     Route: 065
  6. ALBUTEROL [Concomitant]
     Active Substance: ALBUTEROL
     Indication: Viral infection
  7. INSULIN NOS [Concomitant]
     Active Substance: INSULIN NOS
     Indication: Neonatal diabetes mellitus
     Dosage: INSULIN SOURCE UNSPECIFIED (SPECIFIC SUBSTANCE SUB10809)
     Route: 065
  8. THYROXINE [Concomitant]
     Active Substance: LEVOTHYROXINE
     Indication: Congenital hypothyroidism
     Route: 065

REACTIONS (4)
  - Metabolic acidosis [Fatal]
  - Unresponsive to stimuli [Fatal]
  - Pyroglutamic acidosis [Fatal]
  - Cardiac arrest [Fatal]
